FAERS Safety Report 16539945 (Version 1)
Quarter: 2019Q3

REPORT INFORMATION
  Report Type: Spontaneous
  Country: US (occurrence: US)
  Receive Date: 20190524
  Receipt Date: 20190524
  Transmission Date: 20191004
  Serious: Yes (Other)
  Sender: FDA-Public Use
  Company Number: None

PATIENT
  Age: 71 Year
  Sex: Female

DRUGS (18)
  1. ATROVENT [Concomitant]
     Active Substance: IPRATROPIUM BROMIDE
  2. METOLAZONE. [Concomitant]
     Active Substance: METOLAZONE
  3. DUONEB [Concomitant]
     Active Substance: ALBUTEROL SULFATE\IPRATROPIUM BROMIDE
  4. ZOFRAN [Concomitant]
     Active Substance: ONDANSETRON HYDROCHLORIDE
  5. CLOTRIMAZOLE TROCHE [Concomitant]
     Active Substance: CLOTRIMAZOLE
  6. OPSUMIT [Suspect]
     Active Substance: MACITENTAN
     Indication: PULMONARY ARTERIAL HYPERTENSION
     Route: 048
     Dates: start: 201703
  7. TYLENOL [Concomitant]
     Active Substance: ACETAMINOPHEN
  8. BENZONATATE. [Concomitant]
     Active Substance: BENZONATATE
  9. ASPIRIN. [Concomitant]
     Active Substance: ASPIRIN
  10. FLUCONAZOLE. [Concomitant]
     Active Substance: FLUCONAZOLE
  11. SONATA [Concomitant]
     Active Substance: ZALEPLON
  12. LEVOTHYROXINE. [Concomitant]
     Active Substance: LEVOTHYROXINE
  13. ALVESCO HFA [Concomitant]
  14. PANTOPRAZOLE [Concomitant]
     Active Substance: PANTOPRAZOLE
  15. MVI [Concomitant]
     Active Substance: VITAMINS
  16. PREDNISONE. [Concomitant]
     Active Substance: PREDNISONE
  17. MONTELUKAST [Concomitant]
     Active Substance: MONTELUKAST SODIUM
  18. FLONASE [Concomitant]
     Active Substance: FLUTICASONE PROPIONATE

REACTIONS (1)
  - Bronchitis [None]

NARRATIVE: CASE EVENT DATE: 20190430
